FAERS Safety Report 12947371 (Version 1)
Quarter: 2016Q4

REPORT INFORMATION
  Report Type: Spontaneous
  Country: IN (occurrence: IN)
  Receive Date: 20161116
  Receipt Date: 20161116
  Transmission Date: 20170207
  Serious: Yes (Death)
  Sender: FDA-Public Use
  Company Number: IN-PFIZER INC-2016528936

PATIENT
  Age: 38 Year
  Sex: Male

DRUGS (2)
  1. COLISTIN [Concomitant]
     Active Substance: COLISTIN
  2. ERAXIS [Suspect]
     Active Substance: ANIDULAFUNGIN
     Indication: PANCREATIC ABSCESS
     Dosage: 100 MG, 1X/DAY
     Route: 042

REACTIONS (2)
  - Death [Fatal]
  - Candida infection [Not Recovered/Not Resolved]
